FAERS Safety Report 6603258-3 (Version None)
Quarter: 2010Q1

REPORT INFORMATION
  Report Type: 
  Country: None (occurrence: None)
  Receive Date: 20100226
  Receipt Date: 20100215
  Transmission Date: 20100710
  Serious: Yes (Death)
  Sender: FDA-Public Use
  Company Number: US-JNJFOC-20100208342

PATIENT
  Sex: Male
  Weight: 115.21 kg

DRUGS (8)
  1. DURAGESIC-100 [Suspect]
     Indication: DRUG USE FOR UNKNOWN INDICATION
     Route: 062
  2. ETOMIDATE [Concomitant]
     Route: 065
  3. LIDOCAINE [Concomitant]
     Route: 065
  4. MIRTAZAPINE [Concomitant]
     Route: 065
  5. TEMAZEPAM [Concomitant]
     Route: 065
  6. GABAPENTIN [Concomitant]
     Route: 065
  7. MORPHINE [Concomitant]
     Route: 065
  8. OXAZEPAM [Concomitant]
     Route: 065

REACTIONS (2)
  - DRUG ADMINISTERED AT INAPPROPRIATE SITE [None]
  - NARCOTIC INTOXICATION [None]
